FAERS Safety Report 22200704 (Version 4)
Quarter: 2024Q2

REPORT INFORMATION
  Report Type: Report from Study
  Country: US (occurrence: US)
  Receive Date: 20230412
  Receipt Date: 20240503
  Transmission Date: 20240716
  Serious: Yes (Other)
  Sender: FDA-Public Use
  Company Number: US-ABBVIE-4724828

PATIENT
  Sex: Male

DRUGS (1)
  1. VENCLEXTA [Suspect]
     Active Substance: VENETOCLAX
     Indication: Acute lymphocytic leukaemia
     Dosage: FORM STRENGTH: 100 MILLIGRAM?TAKE 4 TABLET(S) BY MOUTH DAILY
     Route: 048

REACTIONS (3)
  - Injury [Unknown]
  - Off label use [Unknown]
  - Hypoacusis [Unknown]
